FAERS Safety Report 5905691-1 (Version None)
Quarter: 2008Q4

REPORT INFORMATION
  Report Type: 
  Country: None (occurrence: None)
  Receive Date: 20081001
  Receipt Date: 20081001
  Transmission Date: 20090506
  Serious: Yes (Death)
  Sender: FDA-Public Use
  Company Number: None

PATIENT
  Age: 70 Year
  Sex: Male
  Weight: 113.3993 kg

DRUGS (3)
  1. FENTANYL CITRATE [Suspect]
     Indication: BACK PAIN
     Dosage: DATES VARIED ON STRENGTH
     Dates: start: 20071101, end: 20080615
  2. FENTANYL CITRATE [Suspect]
  3. FENTANYL CITRATE [Suspect]

REACTIONS (1)
  - ACCIDENTAL OVERDOSE [None]
